FAERS Safety Report 16651450 (Version 1)
Quarter: 2019Q3

REPORT INFORMATION
  Report Type: Spontaneous
  Country: US (occurrence: US)
  Receive Date: 20190731
  Receipt Date: 20190731
  Transmission Date: 20191004
  Serious: Yes (Life-Threatening, Hospitalization, Other)
  Sender: FDA-Public Use
  Company Number: US-STRIDES ARCOLAB LIMITED-2019SP006553

PATIENT
  Age: 74 Year
  Sex: Male

DRUGS (5)
  1. VANCOMYCIN [Suspect]
     Active Substance: VANCOMYCIN
     Indication: CELLULITIS
     Dosage: UNK (PROLONGED)
     Route: 065
     Dates: start: 2017
  2. VANCOMYCIN [Suspect]
     Active Substance: VANCOMYCIN
     Indication: WOUND
     Dosage: UNK
     Route: 065
     Dates: start: 2017
  3. VANCOMYCIN [Suspect]
     Active Substance: VANCOMYCIN
     Indication: STAPHYLOCOCCAL INFECTION
  4. PREDNISOLONE. [Suspect]
     Active Substance: PREDNISOLONE
     Indication: RHEUMATOID ARTHRITIS
     Dosage: UNK
     Route: 065
  5. VANCOMYCIN [Suspect]
     Active Substance: VANCOMYCIN
     Indication: STAPHYLOCOCCAL OSTEOMYELITIS

REACTIONS (9)
  - Bacteraemia [Unknown]
  - Pyrexia [Recovered/Resolved]
  - Asthenia [Recovered/Resolved]
  - Chills [Recovered/Resolved]
  - Endocarditis [Recovered/Resolved]
  - Abscess [Recovered/Resolved]
  - Staphylococcal infection [Recovered/Resolved]
  - Fistula [Recovered/Resolved]
  - Drug resistance [Unknown]

NARRATIVE: CASE EVENT DATE: 2018
